FAERS Safety Report 5072745-4 (Version None)
Quarter: 2006Q3

REPORT INFORMATION
  Report Type: 
  Country: None (occurrence: None)
  Receive Date: 20060807
  Receipt Date: 20060714
  Transmission Date: 20061208
  Serious: Yes (Death)
  Sender: FDA-Public Use
  Company Number: US-JNJFOC-20060800829

PATIENT
  Sex: Female

DRUGS (4)
  1. FENTANYL TRANSDERMAL SYSTEM [Suspect]
     Indication: CANCER PAIN
     Route: 062
  2. LACTULOSE [Concomitant]
     Indication: CONSTIPATION
     Dosage: 20GMS/30 ML ONCE A DAY, GASTRIC TUBE
  3. OXYCODONE HCL [Concomitant]
     Indication: PAIN
     Dosage: 5 MG PER 20 ML, AS NEEDED, GASTRIC TUBE
  4. AMOXICILLIN [Concomitant]
     Indication: DRUG USE FOR UNKNOWN INDICATION
     Dosage: 250/6.25, GASTRIC TUBE

REACTIONS (1)
  - NEOPLASM MALIGNANT [None]
